FAERS Safety Report 8646402 (Version 3)
Quarter: 2012Q4

REPORT INFORMATION
  Report Type: Report from Study
  Country: US (occurrence: US)
  Receive Date: 20120702
  Receipt Date: 20120911
  Transmission Date: 20130627
  Serious: Yes (Other)
  Sender: FDA-Public Use
  Company Number: US-ABBOTT-12P-163-0949414-00

PATIENT
  Age: 56 None
  Sex: Male
  Weight: 108 kg

DRUGS (20)
  1. HUMIRA 40 MG/0.8 ML PEN [Suspect]
     Indication: CROHN^S DISEASE
     Route: 058
     Dates: start: 200903, end: 20120826
  2. TRILIPIX [Suspect]
     Indication: DYSLIPIDAEMIA
  3. KEFLEX [Suspect]
     Indication: URINARY TRACT INFECTION
  4. ASMANEX [Concomitant]
     Indication: CHRONIC OBSTRUCTIVE PULMONARY DISEASE
     Dosage: Daily
  5. ALLOPURINOL [Concomitant]
     Indication: GOUTY ARTHRITIS
     Dosage: Daily
  6. QUESTRAN [Concomitant]
     Indication: GASTROINTESTINAL DISORDER
     Dosage: 1 packet 2-4 times daily
  7. VIT B12 [Concomitant]
     Indication: PRODUCT USED FOR UNKNOWN INDICATION
     Route: 050
  8. FORADIL [Concomitant]
     Indication: CHRONIC OBSTRUCTIVE PULMONARY DISEASE
     Route: 055
  9. LISINOPRIL [Concomitant]
     Indication: HYPERTENSION
     Dosage: Daily
  10. LOVAZA [Concomitant]
     Indication: BLOOD CHOLESTEROL INCREASED
  11. PROTONIX [Concomitant]
     Indication: PRODUCT USED FOR UNKNOWN INDICATION
     Dosage: Daily
  12. PROVENTIL HFA [Concomitant]
     Indication: ASTHMA
     Dosage: Every 4-6 hours
  13. SINGULAIR [Concomitant]
     Indication: CHRONIC OBSTRUCTIVE PULMONARY DISEASE
     Dosage: Daily
  14. TRAMADOL [Concomitant]
     Indication: PAIN
  15. BUPROPION SR [Concomitant]
     Indication: INCREASED APPETITE
  16. CLARITIN [Concomitant]
     Indication: HYPERSENSITIVITY
     Dosage: Daily
  17. ASPIRIN [Concomitant]
     Indication: PRODUCT USED FOR UNKNOWN INDICATION
     Dosage: Daily
  18. CENTRUM SILVER [Concomitant]
     Indication: PRODUCT USED FOR UNKNOWN INDICATION
     Dosage: Daily
  19. CALCIUM CITRATE [Concomitant]
     Indication: PRODUCT USED FOR UNKNOWN INDICATION
     Dosage: Daily
  20. VITAMIN D3 [Concomitant]
     Indication: PRODUCT USED FOR UNKNOWN INDICATION

REACTIONS (13)
  - Joint hyperextension [Recovered/Resolved]
  - Fall [Not Recovered/Not Resolved]
  - Hepatic enzyme increased [Not Recovered/Not Resolved]
  - Blood triglycerides increased [Not Recovered/Not Resolved]
  - Prostatomegaly [Unknown]
  - Urinary tract infection [Not Recovered/Not Resolved]
  - Drug ineffective [Not Recovered/Not Resolved]
  - Drug ineffective [Unknown]
  - Blood creatine phosphokinase increased [Unknown]
  - Urine flow decreased [Unknown]
  - Rotator cuff syndrome [Unknown]
  - Exostosis [Unknown]
  - Inguinal hernia [Unknown]
